FAERS Safety Report 5385330-1 (Version None)
Quarter: 2007Q3

REPORT INFORMATION
  Report Type: 
  Country: None (occurrence: None)
  Receive Date: 20070709
  Receipt Date: 20070709
  Transmission Date: 20080115
  Serious: Yes (Death, Hospitalization)
  Sender: FDA-Public Use
  Company Number: None

PATIENT
  Age: 86 Year
  Sex: Female

DRUGS (1)
  1. HEPARIN [Suspect]

REACTIONS (5)
  - CARDIO-RESPIRATORY ARREST [None]
  - DISSEMINATED INTRAVASCULAR COAGULATION [None]
  - PERIPHERAL ISCHAEMIA [None]
  - RENAL FAILURE ACUTE [None]
  - THROMBOCYTOPENIA [None]
